FAERS Safety Report 4487353-3 (Version None)
Quarter: 2004Q4

REPORT INFORMATION
  Report Type: 
  Country: None (occurrence: None)
  Receive Date: 20041022
  Receipt Date: 20041013
  Transmission Date: 20050328
  Serious: Yes (Other)
  Sender: FDA-Public Use
  Company Number: 2004-10-0811

PATIENT
  Sex: Male

DRUGS (1)
  1. CLARINEX [Suspect]
     Indication: HYPERSENSITIVITY
     Dosage: 1 TABLET QD ORAL
     Route: 048

REACTIONS (1)
  - AGEUSIA [None]
